FAERS Safety Report 8996891 (Version 1)
Quarter: 2012Q4

REPORT INFORMATION
  Report Type: Spontaneous
  Country: JP (occurrence: None)
  Receive Date: 20121220
  Receipt Date: 20121220
  Transmission Date: 20130627
  Serious: Yes (Other)
  Sender: FDA-Public Use
  Company Number: 2012-22094

PATIENT
  Age: 69 Year
  Sex: Female

DRUGS (2)
  1. GEMCITABINE [Suspect]
     Indication: UROTHELIAL CARCINOMA
  2. CISPLATIN [Suspect]
     Indication: UROTHELIAL CARCINOMA

REACTIONS (2)
  - Renal salt-wasting syndrome [None]
  - Hyponatraemia [None]
